FAERS Safety Report 5127264-3 (Version None)
Quarter: 2006Q4

REPORT INFORMATION
  Report Type: 
  Country: None (occurrence: None)
  Receive Date: 20061010
  Receipt Date: 20060922
  Transmission Date: 20070319
  Serious: Yes (Congenital Anomaly)
  Sender: FDA-Public Use
  Company Number: CIP06002213

PATIENT
  Sex: 0

DRUGS (2)
  1. FURADANTIN [Suspect]
     Dosage: TRANSPLACENTAL
     Route: 064
  2. OXOLINIC ACID (OXOLINIC ACID) [Suspect]
     Dosage: 1.5 MG, DAILY FOR 2-4 WEEKS, TRANSPLACENTAL
     Route: 064

REACTIONS (2)
  - CONGENITAL ANOMALY [None]
  - DRUG EXPOSURE DURING PREGNANCY [None]
